FAERS Safety Report 26177336 (Version 1)
Quarter: 2025Q4

REPORT INFORMATION
  Report Type: Report from Study
  Country: CA (occurrence: CA)
  Receive Date: 20251219
  Receipt Date: 20251219
  Transmission Date: 20260117
  Serious: Yes (Death, Life-Threatening, Hospitalization)
  Sender: AMGEN
  Company Number: CA-AMGEN-CANSL2025247721

PATIENT
  Age: 45 Year
  Sex: Female

DRUGS (1)
  1. ADALIMUMAB [Suspect]
     Active Substance: ADALIMUMAB
     Indication: Hidradenitis
     Dosage: 40 MILLIGRAM, QWK
     Route: 065
     Dates: start: 20250116

REACTIONS (4)
  - Toxicity to various agents [Fatal]
  - Renal disorder [Fatal]
  - Cerebrovascular accident [Fatal]
  - Malaise [Unknown]

NARRATIVE: CASE EVENT DATE: 20250101
